FAERS Safety Report 6784738-7 (Version None)
Quarter: 2010Q2

REPORT INFORMATION
  Report Type: 
  Country: None (occurrence: None)
  Receive Date: 20100622
  Receipt Date: 20070928
  Transmission Date: 20101027
  Serious: Yes (Death)
  Sender: FDA-Public Use
  Company Number: AU-GENZYME-THYM-11565

PATIENT

DRUGS (3)
  1. THYMOGLOBULIN [Suspect]
     Indication: IMMUNOSUPPRESSION
     Dosage: 0.5 MG/KG, QD
  2. THYMOGLOBULIN [Suspect]
     Indication: BONE MARROW TRANSPLANT
     Dosage: 1.5 MG/KG, QD
  3. THYMOGLOBULIN [Suspect]
     Dosage: 4 MG/KG, QD

REACTIONS (2)
  - EPSTEIN-BARR VIRUS ASSOCIATED LYMPHOPROLIFERATIVE DISORDER [None]
  - EPSTEIN-BARR VIRUS INFECTION [None]
